FAERS Safety Report 20661269 (Version 1)
Quarter: 2022Q2

REPORT INFORMATION
  Report Type: Spontaneous
  Country: ES (occurrence: ES)
  Receive Date: 20220401
  Receipt Date: 20220401
  Transmission Date: 20220720
  Serious: Yes (Hospitalization)
  Sender: FDA-Public Use
  Company Number: ES-009507513-2203ESP004479

PATIENT
  Age: 12 Year
  Sex: Male
  Weight: 31.5 kg

DRUGS (9)
  1. IRINOTECAN [Suspect]
     Active Substance: IRINOTECAN
     Indication: Product used for unknown indication
     Dosage: 50 MILLIGRAM, CYCLICAL (DAYS 1 TO 5 OF A 21 DAY CYCLE)
     Route: 042
     Dates: start: 20211129
  2. IRINOTECAN [Suspect]
     Active Substance: IRINOTECAN
     Indication: Glioneuronal tumour
     Dosage: 58 MILLIGRAM, CYCLICAL (DAYS 1 TO 5 OF A 21 DAY CYCLE)
     Route: 042
     Dates: start: 20211220, end: 20220107
  3. TEMOZOLOMIDE [Suspect]
     Active Substance: TEMOZOLOMIDE
     Indication: Product used for unknown indication
     Dosage: 120 MILLIGRAM, CYCLICAL (DAYS 1 TO 5 OF A 21 DAY CYCLE)
     Route: 048
     Dates: start: 20211129
  4. TEMOZOLOMIDE [Suspect]
     Active Substance: TEMOZOLOMIDE
     Indication: Glioneuronal tumour
     Dosage: 120 MILLIGRAM, CYCLICAL (DAYS 1 TO 5 OF A 21 DAY CYCLE)
     Route: 048
     Dates: start: 20211129
  5. TEMOZOLOMIDE [Suspect]
     Active Substance: TEMOZOLOMIDE
     Dosage: 120 MILLIGRAM, CYCLICAL (DAYS 1 TO 5 OF A 21 DAY CYCLE)
     Route: 048
     Dates: start: 20211220, end: 20220107
  6. ABEMACICLIB [Suspect]
     Active Substance: ABEMACICLIB
     Indication: Glioneuronal tumour
     Dosage: 150 MILLIGRAM, ONCE A DAY (75 MILLIGRAM, BID)
     Route: 048
     Dates: start: 20211129, end: 20220110
  7. TRIMETHOPRIM [Concomitant]
     Active Substance: TRIMETHOPRIM
     Indication: Product used for unknown indication
     Dosage: UNK
     Route: 065
     Dates: start: 20211203
  8. SULFAMETHOXAZOLE [Concomitant]
     Active Substance: SULFAMETHOXAZOLE
     Indication: Product used for unknown indication
     Dosage: UNK
     Route: 065
     Dates: start: 20211203
  9. LEVETIRACETAM [Concomitant]
     Active Substance: LEVETIRACETAM
     Indication: Product used for unknown indication
     Dosage: UNK
     Route: 065
     Dates: start: 20160415

REACTIONS (2)
  - Vomiting [Recovering/Resolving]
  - Dysgeusia [Recovered/Resolved with Sequelae]

NARRATIVE: CASE EVENT DATE: 20220125
